FAERS Safety Report 19433845 (Version 2)
Quarter: 2021Q3

REPORT INFORMATION
  Report Type: Spontaneous
  Country: US (occurrence: US)
  Receive Date: 20210618
  Receipt Date: 20210923
  Transmission Date: 20211014
  Serious: Yes (Hospitalization)
  Sender: FDA-Public Use
  Company Number: US-SA-2021SA127618

PATIENT
  Age: 2 Year
  Sex: Male

DRUGS (1)
  1. CEREZYME [Suspect]
     Active Substance: IMIGLUCERASE
     Indication: GAUCHER^S DISEASE
     Dosage: 800 IU, QOW
     Route: 041
     Dates: start: 20210505

REACTIONS (6)
  - Eye swelling [Unknown]
  - Swelling [Unknown]
  - Abdominal distension [Unknown]
  - Swollen tongue [Unknown]
  - Mouth swelling [Unknown]
  - Hospitalisation [Unknown]

NARRATIVE: CASE EVENT DATE: 2021
